FAERS Safety Report 9675368 (Version 1)
Quarter: 2013Q4

REPORT INFORMATION
  Report Type: Spontaneous
  Country: US (occurrence: US)
  Receive Date: 20131107
  Receipt Date: 20131107
  Transmission Date: 20140711
  Serious: No
  Sender: FDA-Public Use
  Company Number: US-PFIZER INC-2013314175

PATIENT
  Age: 15 Year
  Sex: Female
  Weight: 58.96 kg

DRUGS (1)
  1. ADVIL [Suspect]
     Indication: PAIN
     Dosage: 400 MG (TAKING TWO TABLETS OF 200MG), ONCE A DAY
     Route: 048
     Dates: start: 20131101

REACTIONS (2)
  - Throat irritation [Unknown]
  - Feeling hot [Unknown]
